FAERS Safety Report 5084460-1 (Version None)
Quarter: 2006Q3

REPORT INFORMATION
  Report Type: 
  Country: None (occurrence: None)
  Receive Date: 20060815
  Receipt Date: 20060731
  Transmission Date: 20061208
  Serious: Yes (Disabling)
  Sender: FDA-Public Use
  Company Number: 2006S1006384

PATIENT
  Age: 83 Year
  Sex: Female
  Weight: 51.7101 kg

DRUGS (2)
  1. NITROFURANTOIN MONOHYDRATE/MACROCRYSTALS CAPSULES (100 MG) [Suspect]
     Indication: URINARY TRACT INFECTION
     Dosage: 100 MG; BID; PO
     Route: 048
     Dates: start: 20060515, end: 20060525
  2. MONTELUKAST (CON.) [Concomitant]

REACTIONS (10)
  - ARTHRALGIA [None]
  - ASTHENIA [None]
  - COORDINATION ABNORMAL [None]
  - COUGH [None]
  - DYSPNOEA [None]
  - GAIT DISTURBANCE [None]
  - MOTOR DYSFUNCTION [None]
  - PNEUMONITIS [None]
  - TREMOR [None]
  - WEIGHT DECREASED [None]
